FAERS Safety Report 25338762 (Version 1)
Quarter: 2025Q2

REPORT INFORMATION
  Report Type: Spontaneous
  Country: US (occurrence: US)
  Receive Date: 20250520
  Receipt Date: 20250520
  Transmission Date: 20250716
  Serious: No
  Sender: Unknown Manufacturer
  Company Number: US-MTPC-MTPA2025-0009231

PATIENT
  Sex: Female

DRUGS (15)
  1. RADICAVA ORS [Suspect]
     Active Substance: EDARAVONE
     Indication: Amyotrophic lateral sclerosis
     Route: 065
  2. RADICAVA ORS [Suspect]
     Active Substance: EDARAVONE
     Indication: Amyotrophic lateral sclerosis
     Route: 065
  3. BIOTIN [Concomitant]
     Active Substance: BIOTIN
     Indication: Product used for unknown indication
     Route: 065
  4. L-serine [Concomitant]
     Indication: Product used for unknown indication
     Route: 065
  5. VITAMINS [Concomitant]
     Active Substance: VITAMINS
     Indication: Product used for unknown indication
     Route: 065
  6. PROBIOTICS NOS [Concomitant]
     Active Substance: PROBIOTICS NOS
     Indication: Product used for unknown indication
     Route: 065
  7. RILUZOLE [Concomitant]
     Active Substance: RILUZOLE
     Indication: Amyotrophic lateral sclerosis
     Route: 065
  8. SELENIUM [Concomitant]
     Active Substance: SELENIUM
     Indication: Product used for unknown indication
     Route: 065
  9. SODIUM PHENYLBUTYRATE [Concomitant]
     Active Substance: SODIUM PHENYLBUTYRATE
     Indication: Product used for unknown indication
     Route: 065
  10. URSODOXICOLTAURINE [Concomitant]
     Active Substance: URSODOXICOLTAURINE
     Indication: Product used for unknown indication
     Route: 065
  11. Theracurmin hp [Concomitant]
     Indication: Product used for unknown indication
     Route: 065
  12. VITAMIN A [Concomitant]
     Active Substance: VITAMIN A
     Indication: Product used for unknown indication
     Route: 065
  13. VITAMIN C [Concomitant]
     Active Substance: ASCORBIC ACID
     Indication: Product used for unknown indication
     Route: 065
  14. VITAMIN B [Concomitant]
     Active Substance: VITAMIN B
     Indication: Product used for unknown indication
     Route: 065
  15. VITAMIN E [Concomitant]
     Active Substance: .ALPHA.-TOCOPHEROL
     Indication: Product used for unknown indication
     Route: 065

REACTIONS (6)
  - Adverse drug reaction [Unknown]
  - Sleep disorder [Unknown]
  - Muscle spasms [Unknown]
  - Muscle twitching [Unknown]
  - Cardiac disorder [Unknown]
  - Anxiety [Unknown]
